FAERS Safety Report 5890386-3 (Version None)
Quarter: 2008Q3

REPORT INFORMATION
  Report Type: 
  Country: None (occurrence: None)
  Receive Date: 20080918
  Receipt Date: 20080909
  Transmission Date: 20090109
  Serious: Yes (Other)
  Sender: FDA-Public Use
  Company Number: CHPA2008US14130

PATIENT
  Sex: Female

DRUGS (2)
  1. THERAFLU FLU AND SORE THROAT (NCH) (PHENIRAMINE MALEATE, PHENYLEPHRINE [Suspect]
     Indication: OROPHARYNGEAL PAIN
     Dosage: 1 DF, ONCE/SINGLE, ORAL
     Route: 048
     Dates: start: 20080813
  2. DRUG THERAPY NOS (DRUG THERAPY NOS) [Concomitant]

REACTIONS (3)
  - CHROMATURIA [None]
  - CYSTITIS [None]
  - NEPHROLITHIASIS [None]
